FAERS Safety Report 23288092 (Version 2)
Quarter: 2024Q1

REPORT INFORMATION
  Report Type: Spontaneous
  Country: US (occurrence: US)
  Receive Date: 20231212
  Receipt Date: 20240329
  Transmission Date: 20240409
  Serious: Yes (Hospitalization)
  Sender: FDA-Public Use
  Company Number: US-PFIZER INC-PV202300177695

PATIENT
  Age: 67 Year
  Sex: Female

DRUGS (1)
  1. IBRANCE [Suspect]
     Active Substance: PALBOCICLIB
     Indication: Breast cancer female
     Dosage: 125 MG TABLET DAILY FOR 21 DAYS EVERY MONTH
     Dates: start: 20230720, end: 20240213

REACTIONS (3)
  - Cholecystectomy [Unknown]
  - Pleural effusion [Unknown]
  - Neoplasm progression [Unknown]
